FAERS Safety Report 10041953 (Version 1)
Quarter: 2014Q1

REPORT INFORMATION
  Report Type: Spontaneous
  Country: US (occurrence: US)
  Receive Date: 20140327
  Receipt Date: 20140327
  Transmission Date: 20141002
  Serious: No
  Sender: FDA-Public Use
  Company Number: US-ENDO PHARMACEUTICALS INC.-PMDM20130002

PATIENT
  Age: 63 Year
  Sex: Female

DRUGS (2)
  1. PROMETHAZINE DM [Suspect]
     Indication: NASOPHARYNGITIS
     Dosage: 2.5 ML
     Route: 048
     Dates: start: 201210
  2. PROMETHAZINE DM [Suspect]
     Indication: BRONCHITIS

REACTIONS (1)
  - Somnolence [Unknown]
